FAERS Safety Report 20474686 (Version 2)
Quarter: 2022Q1

REPORT INFORMATION
  Report Type: Report from Study
  Country: US (occurrence: US)
  Receive Date: 20220215
  Receipt Date: 20220225
  Transmission Date: 20220423
  Serious: No
  Sender: FDA-Public Use
  Company Number: US-BIOVITRUM-2021US8618

PATIENT
  Sex: Male

DRUGS (1)
  1. KINERET [Suspect]
     Active Substance: ANAKINRA
     Indication: Product used for unknown indication
     Route: 058

REACTIONS (7)
  - Loss of personal independence in daily activities [Not Recovered/Not Resolved]
  - Sinusitis [Unknown]
  - Nasopharyngitis [Unknown]
  - Injection site pain [Unknown]
  - Therapy interrupted [Unknown]
  - Product dose omission issue [Unknown]
  - Drug ineffective [Unknown]
